FAERS Safety Report 24397968 (Version 4)
Quarter: 2024Q4

REPORT INFORMATION
  Report Type: Spontaneous
  Country: US (occurrence: US)
  Receive Date: 20241004
  Receipt Date: 20241112
  Transmission Date: 20250115
  Serious: No
  Sender: PFIZER
  Company Number: US-PFIZER INC-PV202400128139

PATIENT
  Age: 84 Year
  Sex: Female

DRUGS (1)
  1. DOFETILIDE [Suspect]
     Active Substance: DOFETILIDE
     Indication: Atrial fibrillation
     Dosage: TAKES 1 - 250 IN THE MORNING AND TAKES 1 - 250 AT NIGHT

REACTIONS (2)
  - Headache [Unknown]
  - Drug ineffective [Unknown]
